FAERS Safety Report 12516908 (Version 2)
Quarter: 2016Q3

REPORT INFORMATION
  Report Type: Spontaneous
  Country: JP (occurrence: JP)
  Receive Date: 20160630
  Receipt Date: 20160930
  Transmission Date: 20161109
  Serious: Yes (Other)
  Sender: FDA-Public Use
  Company Number: JP-BRISTOL-MYERS SQUIBB COMPANY-BMS-2016-053259

PATIENT
  Age: 69 Year
  Sex: Male
  Weight: 57 kg

DRUGS (9)
  1. SUNVEPRA [Suspect]
     Active Substance: ASUNAPREVIR
     Indication: HEPATIC CIRRHOSIS
     Dosage: 100 MG, BID
     Route: 048
     Dates: start: 20141002, end: 20150318
  2. MOSAPRIDE CITRATE [Concomitant]
     Active Substance: MOSAPRIDE CITRATE
     Indication: CHRONIC GASTRITIS
     Dosage: 5 MG, TID
     Route: 048
  3. TEPRENONE [Concomitant]
     Active Substance: TEPRENONE
     Indication: CHRONIC GASTRITIS
     Dosage: 50 MG, TID
     Route: 048
  4. BRUFEN                             /00109201/ [Concomitant]
     Active Substance: IBUPROFEN
     Indication: NASOPHARYNGITIS
     Dosage: 200 MG, TID
     Route: 048
     Dates: start: 20141128, end: 20141204
  5. ZYRTEC [Concomitant]
     Active Substance: CETIRIZINE HYDROCHLORIDE
     Indication: RHINITIS ALLERGIC
     Dosage: 10 MG, QD
     Route: 048
     Dates: start: 20140206, end: 20150418
  6. OLMETEC [Concomitant]
     Active Substance: OLMESARTAN MEDOXOMIL
     Indication: HYPERTENSION
     Dosage: 10 MG, QD
     Route: 048
     Dates: start: 20141114
  7. AMLODIPINE BESILATE [Concomitant]
     Active Substance: AMLODIPINE BESYLATE
     Indication: HYPERTENSION
     Dosage: 5 MG, QD
     Route: 048
  8. PL [Concomitant]
     Active Substance: ACETAMINOPHEN\CAFFEINE\PROMETHAZINE\SALICYLAMIDE
     Indication: NASOPHARYNGITIS
     Dosage: 1 G, TID
     Route: 048
     Dates: start: 20141128, end: 20141204
  9. DAKLINZA [Suspect]
     Active Substance: DACLATASVIR
     Indication: HEPATIC CIRRHOSIS
     Dosage: 60 MG, QD
     Route: 048
     Dates: start: 20141002, end: 20150318

REACTIONS (4)
  - Head discomfort [Recovered/Resolved]
  - Nasopharyngitis [Recovered/Resolved]
  - Blood pressure increased [Recovered/Resolved]
  - Hepatitis B DNA increased [Recovered/Resolved]

NARRATIVE: CASE EVENT DATE: 20141114
